FAERS Safety Report 16334407 (Version 2)
Quarter: 2019Q2

REPORT INFORMATION
  Report Type: Spontaneous
  Country: US (occurrence: US)
  Receive Date: 20190520
  Receipt Date: 20190606
  Transmission Date: 20190711
  Serious: No
  Sender: FDA-Public Use
  Company Number: US-ARRAY-2019-05458

PATIENT

DRUGS (6)
  1. IBUPROFEN. [Concomitant]
     Active Substance: IBUPROFEN
     Indication: PRODUCT USED FOR UNKNOWN INDICATION
  2. ALPRAZOLAM. [Concomitant]
     Active Substance: ALPRAZOLAM
     Indication: PRODUCT USED FOR UNKNOWN INDICATION
  3. ADDERALL [Concomitant]
     Active Substance: AMPHETAMINE ASPARTATE\AMPHETAMINE SULFATE\DEXTROAMPHETAMINE SACCHARATE\DEXTROAMPHETAMINE SULFATE
     Indication: PRODUCT USED FOR UNKNOWN INDICATION
  4. BIOTIN [Concomitant]
     Active Substance: BIOTIN
     Indication: PRODUCT USED FOR UNKNOWN INDICATION
  5. BRAFTOVI [Suspect]
     Active Substance: ENCORAFENIB
     Indication: BRAIN NEOPLASM
     Dosage: 300 MG, QD
     Route: 048
     Dates: start: 20190405
  6. LAMOTRIGINE. [Concomitant]
     Active Substance: LAMOTRIGINE
     Indication: PRODUCT USED FOR UNKNOWN INDICATION

REACTIONS (11)
  - Skin burning sensation [Not Recovered/Not Resolved]
  - Skin texture abnormal [Unknown]
  - Contusion [Unknown]
  - Rash erythematous [Unknown]
  - Nausea [Unknown]
  - Off label use [Not Recovered/Not Resolved]
  - Skin discolouration [Unknown]
  - Bone pain [Unknown]
  - Diarrhoea [Unknown]
  - Hair texture abnormal [Unknown]
  - Vomiting [Unknown]

NARRATIVE: CASE EVENT DATE: 201904
